FAERS Safety Report 9206812 (Version 1)
Quarter: 2013Q1

REPORT INFORMATION
  Report Type: Spontaneous
  Country: US (occurrence: None)
  Receive Date: 20120713
  Receipt Date: 20120713
  Transmission Date: 20140127
  Serious: No
  Sender: FDA-Public Use
  Company Number: PHEH2012US011985

PATIENT
  Sex: Female
  Weight: 69 kg

DRUGS (1)
  1. ILARIS [Suspect]
     Indication: MUCKLE-WELLS SYNDROME
     Dosage: EVERY 7 WEEKS

REACTIONS (1)
  - Muckle-Wells syndrome [None]
